FAERS Safety Report 17048381 (Version 2)
Quarter: 2023Q4

REPORT INFORMATION
  Report Type: Spontaneous
  Country: US (occurrence: US)
  Receive Date: 20191119
  Receipt Date: 20231201
  Transmission Date: 20240109
  Serious: No
  Sender: FDA-Public Use
  Company Number: US-PFIZER INC-2019459236

PATIENT
  Age: 79 Year
  Sex: Female

DRUGS (1)
  1. IBRANCE [Suspect]
     Active Substance: PALBOCICLIB
     Indication: Breast cancer female
     Dosage: 75 MG, TAKE 1 (75 MG CAPSULE) PO DAILY FOR 21 DAYS THEN REST FOR 7 DAYS
     Route: 048
     Dates: start: 20171117

REACTIONS (1)
  - Neoplasm progression [Unknown]
